FAERS Safety Report 5671853-4 (Version None)
Quarter: 2008Q1

REPORT INFORMATION
  Report Type: 
  Country: None (occurrence: None)
  Receive Date: 20080317
  Receipt Date: 20080317
  Transmission Date: 20080703
  Serious: Yes (Other)
  Sender: FDA-Public Use
  Company Number: None

PATIENT
  Age: 48 Year
  Sex: Male
  Weight: 86.1834 kg

DRUGS (1)
  1. OXYCONTIN [Suspect]
     Indication: INTERVERTEBRAL DISC DEGENERATION
     Dosage: 80MG TWICE DAILY PO
     Route: 048
     Dates: start: 20000513, end: 20070913

REACTIONS (8)
  - ABDOMINAL PAIN UPPER [None]
  - AGEUSIA [None]
  - ANOSMIA [None]
  - HYPOAESTHESIA [None]
  - LACTOSE INTOLERANCE [None]
  - PHARMACEUTICAL PRODUCT COMPLAINT [None]
  - SKIN ATROPHY [None]
  - VISUAL DISTURBANCE [None]
